FAERS Safety Report 12182674 (Version 1)
Quarter: 2016Q1

REPORT INFORMATION
  Report Type: Spontaneous
  Country: CZ (occurrence: CZ)
  Receive Date: 20160316
  Receipt Date: 20160316
  Transmission Date: 20160526
  Serious: Yes (Other)
  Sender: FDA-Public Use
  Company Number: CZ-ACCORD-038860

PATIENT
  Age: 78 Year
  Sex: Female

DRUGS (2)
  1. ETOPOSIDE. [Suspect]
     Active Substance: ETOPOSIDE
     Indication: CHRONIC MYELOMONOCYTIC LEUKAEMIA
     Dosage: 150 MG/WEEK.?150 MG I.V. WITH INTERVAL OF 14-28 DAYS
     Route: 042
  2. HYDROXYCARBAMIDE [Suspect]
     Active Substance: HYDROXYUREA
     Indication: CHRONIC MYELOMONOCYTIC LEUKAEMIA
     Dosage: TYPICALLY 1 G/DAY, SUBSTITUTING 1 AND 0.5 G /DAY

REACTIONS (2)
  - Infection [Unknown]
  - Pneumonia [Unknown]
